FAERS Safety Report 25135836 (Version 1)
Quarter: 2025Q1

REPORT INFORMATION
  Report Type: Spontaneous
  Country: US (occurrence: None)
  Receive Date: 20250328
  Receipt Date: 20250328
  Transmission Date: 20250409
  Serious: Yes (Other)
  Sender: FDA-CTU
  Company Number: None

PATIENT
  Age: 58 Year
  Sex: Male
  Weight: 111.6 kg

DRUGS (17)
  1. XTAMPZA [Suspect]
     Active Substance: OXYCODONE
     Indication: Chest pain
     Dosage: 1 CAPSULE EVERY 12 HOURS ORAL?
     Route: 048
     Dates: start: 20250303, end: 20250328
  2. TIZANIDINE [Concomitant]
     Active Substance: TIZANIDINE
  3. LUNESTA [Concomitant]
     Active Substance: ESZOPICLONE
  4. AMITRIPTYLINE [Concomitant]
     Active Substance: AMITRIPTYLINE
  5. LYRICA [Concomitant]
     Active Substance: PREGABALIN
  6. ZOFRAN [Concomitant]
     Active Substance: ONDANSETRON HYDROCHLORIDE
  7. PHENOBARBITAL [Concomitant]
     Active Substance: PHENOBARBITAL
  8. PROVENTIL [Concomitant]
     Active Substance: ALBUTEROL
  9. PITAVASTATIN [Concomitant]
     Active Substance: PITAVASTATIN
  10. FAMOTIDINE [Concomitant]
     Active Substance: FAMOTIDINE
  11. TRINTELLIX [Concomitant]
     Active Substance: VORTIOXETINE HYDROBROMIDE
  12. DICLOFENAC [Concomitant]
     Active Substance: DICLOFENAC
  13. TYLENOL [Concomitant]
     Active Substance: ACETAMINOPHEN
  14. MOTRIN [Concomitant]
     Active Substance: IBUPROFEN
  15. IMODIUM [Concomitant]
     Active Substance: LOPERAMIDE HYDROCHLORIDE
  16. ASPIRIN [Concomitant]
     Active Substance: ASPIRIN
  17. FLONASE [Concomitant]
     Active Substance: FLUTICASONE PROPIONATE

REACTIONS (3)
  - Headache [None]
  - Migraine [None]
  - Blood pressure increased [None]

NARRATIVE: CASE EVENT DATE: 20250310
